FAERS Safety Report 10207772 (Version 1)
Quarter: 2014Q2

REPORT INFORMATION
  Report Type: Spontaneous
  Country: US (occurrence: US)
  Receive Date: 20140530
  Receipt Date: 20140530
  Transmission Date: 20141212
  Serious: No
  Sender: FDA-Public Use
  Company Number: US-GLAXOSMITHKLINE-A1058681A

PATIENT
  Age: 54 Year
  Sex: Female

DRUGS (13)
  1. VENTOLIN [Suspect]
     Indication: ASTHMA
     Dosage: 2PUFF TWICE PER DAY
     Route: 055
     Dates: start: 2004
  2. SINGULAIR [Concomitant]
  3. LOVASTATIN [Concomitant]
  4. LANTUS [Concomitant]
  5. HCTZ [Concomitant]
  6. DOXAZOSIN [Concomitant]
  7. CYMBALTA [Concomitant]
  8. ADVAIR [Concomitant]
  9. VITAMIN D [Concomitant]
  10. BABY ASPIRIN [Concomitant]
  11. QUINAPRIL [Concomitant]
  12. ROBAXIN [Concomitant]
  13. PERCOCET [Concomitant]

REACTIONS (1)
  - Cough [Not Recovered/Not Resolved]
